FAERS Safety Report 7632075-0 (Version None)
Quarter: 2011Q3

REPORT INFORMATION
  Report Type: 
  Country: None (occurrence: None)
  Receive Date: 20110725
  Receipt Date: 20110711
  Transmission Date: 20111222
  Serious: Yes (Hospitalization)
  Sender: FDA-Public Use
  Company Number: ES-JNJFOC-20110702318

PATIENT
  Sex: Male
  Weight: 68.5 kg

DRUGS (4)
  1. PREZISTA [Suspect]
     Indication: HIV INFECTION
     Route: 048
     Dates: start: 20110503
  2. OTHER THERAPEUTIC PRODUCTS [Concomitant]
  3. RITONAVIR [Suspect]
     Indication: HIV INFECTION
     Route: 048
     Dates: start: 20110503
  4. TRUVADA [Concomitant]
     Indication: HIV INFECTION
     Route: 065
     Dates: start: 20110503

REACTIONS (2)
  - PYREXIA [None]
  - RASH [None]
